FAERS Safety Report 10908707 (Version 2)
Quarter: 2015Q1

REPORT INFORMATION
  Report Type: Spontaneous
  Country: JP (occurrence: JP)
  Receive Date: 20150312
  Receipt Date: 20150320
  Transmission Date: 20150721
  Serious: Yes (Other)
  Sender: FDA-Public Use
  Company Number: JP-PFIZER INC-2015089093

PATIENT
  Age: 47 Year
  Sex: Male

DRUGS (4)
  1. GLYCYRON [Concomitant]
     Active Substance: AMMONIUM GLYCYRRHIZATE\GLYCINE\METHIONINE
     Indication: DERMATITIS ATOPIC
     Dosage: UNK UNK, DAILY
     Route: 048
     Dates: start: 20140802, end: 20150317
  2. MEDROL [Suspect]
     Active Substance: METHYLPREDNISOLONE
     Indication: DERMATITIS ATOPIC
     Dosage: 4 MG, 2X/DAY
     Route: 048
  3. SUPLATAST TOSILATE [Concomitant]
     Active Substance: SUPLATAST TOSILATE
     Indication: DERMATITIS ATOPIC
     Dosage: UNK, DAILY
     Route: 048
     Dates: end: 20150317
  4. ALLELOCK [Concomitant]
     Active Substance: OLOPATADINE HYDROCHLORIDE
     Indication: DERMATITIS ATOPIC
     Dosage: 5 MG, 2X/DAY
     Route: 048
     Dates: start: 20140802, end: 20150317

REACTIONS (1)
  - Nephrolithiasis [Unknown]

NARRATIVE: CASE EVENT DATE: 20150310
